FAERS Safety Report 22124331 (Version 1)
Quarter: 2023Q1

REPORT INFORMATION
  Report Type: Spontaneous
  Country: FR (occurrence: FR)
  Receive Date: 20230322
  Receipt Date: 20230322
  Transmission Date: 20230417
  Serious: Yes (Hospitalization)
  Sender: FDA-Public Use
  Company Number: None

PATIENT
  Age: 73 Year
  Sex: Female

DRUGS (2)
  1. PACLITAXEL [Suspect]
     Active Substance: PACLITAXEL
     Indication: Breast cancer
     Dosage: 348 MILLIGRAM, Q3W
     Route: 042
     Dates: start: 20220426, end: 20220719
  2. CARBOPLATIN [Suspect]
     Active Substance: CARBOPLATIN
     Indication: Breast cancer
     Dosage: 700 MILLIGRAM, Q3W
     Route: 042
     Dates: start: 20220426, end: 20220719

REACTIONS (1)
  - Colitis ischaemic [Recovered/Resolved]

NARRATIVE: CASE EVENT DATE: 20220701
